FAERS Safety Report 8138775-0 (Version None)
Quarter: 2012Q1

REPORT INFORMATION
  Report Type: 
  Country: None (occurrence: None)
  Receive Date: 20120215
  Receipt Date: 20120209
  Transmission Date: 20120608
  Serious: Yes (Other)
  Sender: FDA-Public Use
  Company Number: DK-GLAXOSMITHKLINE-B0781396A

PATIENT
  Sex: Male

DRUGS (4)
  1. ASPIRIN [Concomitant]
     Dosage: 75MG PER DAY
     Route: 048
  2. LAMOTRIGINE [Suspect]
     Indication: EPILEPSY
     Dosage: 50MG TWICE PER DAY
     Route: 048
  3. ACETAMINOPHEN [Suspect]
     Indication: SKELETAL INJURY
     Route: 048
     Dates: start: 20111201
  4. PERSANTIN [Concomitant]
     Dosage: 200MG TWICE PER DAY
     Route: 048

REACTIONS (3)
  - PETIT MAL EPILEPSY [None]
  - DRUG INTERACTION [None]
  - EPILEPSY [None]
